FAERS Safety Report 11244827 (Version 1)
Quarter: 2015Q3

REPORT INFORMATION
  Report Type: Spontaneous
  Country: IT (occurrence: IT)
  Receive Date: 20150707
  Receipt Date: 20150707
  Transmission Date: 20151125
  Serious: Yes (Other)
  Sender: FDA-Public Use
  Company Number: IT-CIPLA LTD.-2015IT05343

PATIENT

DRUGS (8)
  1. CANDESARTAN [Suspect]
     Active Substance: CANDESARTAN
     Indication: DEPRESSION
     Dosage: 16 MG, QD
     Route: 065
  2. SERTRALINE [Suspect]
     Active Substance: SERTRALINE HYDROCHLORIDE
     Indication: DEPRESSION
     Dosage: 50 MG, QD
     Route: 065
  3. NICERGOLINE [Suspect]
     Active Substance: NICERGOLINE
     Indication: DEPRESSION
     Dosage: 30 MG, QD
     Route: 065
  4. AMISULPRIDE [Suspect]
     Active Substance: AMISULPRIDE
     Indication: DEPRESSED MOOD
     Dosage: 50 MG, QD
     Route: 065
  5. DIAZEPAM. [Suspect]
     Active Substance: DIAZEPAM
     Indication: DEPRESSED MOOD
     Dosage: MG AT BEDTIME 6 MONTHS PRIOR TO THE PSYCHIATRIST APPOINTMENT,
     Route: 065
  6. AMLODIPINE [Suspect]
     Active Substance: AMLODIPINE BESYLATE
     Indication: DEPRESSION
     Dosage: 5 MG, QD
     Route: 065
  7. ASPIRIN. [Suspect]
     Active Substance: ASPIRIN
     Indication: DEPRESSION
     Dosage: 100 MG, QD
     Route: 065
  8. ATENOLOL. [Suspect]
     Active Substance: ATENOLOL
     Indication: DEPRESSION
     Dosage: 25 MG, QD
     Route: 065

REACTIONS (1)
  - Rhabdomyolysis [Recovered/Resolved]
